FAERS Safety Report 15308530 (Version 1)
Quarter: 2018Q3

REPORT INFORMATION
  Report Type: Spontaneous
  Country: US (occurrence: US)
  Receive Date: 20180822
  Receipt Date: 20180822
  Transmission Date: 20181010
  Serious: No
  Sender: FDA-Public Use
  Company Number: US-BIOGEN-2018BI00622993

PATIENT
  Sex: Female

DRUGS (1)
  1. TECFIDERA [Suspect]
     Active Substance: DIMETHYL FUMARATE
     Indication: MULTIPLE SCLEROSIS
     Route: 065
     Dates: start: 20140905

REACTIONS (6)
  - Ageusia [Unknown]
  - Asthenia [Unknown]
  - Diarrhoea [Unknown]
  - Gastric disorder [Unknown]
  - Feeding disorder [Unknown]
  - Vomiting [Unknown]
